FAERS Safety Report 23028151 (Version 1)
Quarter: 2023Q4

REPORT INFORMATION
  Report Type: Spontaneous
  Country: US (occurrence: US)
  Receive Date: 20231004
  Receipt Date: 20231004
  Transmission Date: 20240110
  Serious: No
  Sender: FDA-Public Use
  Company Number: US-ABBVIE-5435181

PATIENT
  Age: 87 Year
  Sex: Female

DRUGS (1)
  1. CREON [Suspect]
     Active Substance: PANCRELIPASE AMYLASE\PANCRELIPASE LIPASE\PANCRELIPASE PROTEASE
     Indication: Product used for unknown indication
     Dosage: DOSAGE: 36000 U
     Route: 048
     Dates: start: 202309

REACTIONS (1)
  - Musculoskeletal pain [Unknown]

NARRATIVE: CASE EVENT DATE: 20230901
